FAERS Safety Report 17702592 (Version 1)
Quarter: 2020Q2

REPORT INFORMATION
  Report Type: Spontaneous
  Country: US (occurrence: US)
  Receive Date: 20200424
  Receipt Date: 20200424
  Transmission Date: 20200714
  Serious: No
  Sender: FDA-Public Use
  Company Number: US-ACCORD-170330

PATIENT
  Age: 93 Year
  Sex: Male
  Weight: 68.04 kg

DRUGS (1)
  1. ATORVASTATIN ACCORD [Suspect]
     Active Substance: ATORVASTATIN
     Indication: BLOOD CHOLESTEROL INCREASED
     Route: 048
     Dates: start: 2018, end: 20190524

REACTIONS (2)
  - Pain [Not Recovered/Not Resolved]
  - Adverse event [Unknown]
